FAERS Safety Report 6286304-9 (Version None)
Quarter: 2009Q3

REPORT INFORMATION
  Report Type: 
  Country: None (occurrence: None)
  Receive Date: 20090727
  Receipt Date: 20090727
  Transmission Date: 20100115
  Serious: No
  Sender: FDA-Public Use
  Company Number: None

PATIENT
  Sex: Male
  Weight: 83.4619 kg

DRUGS (1)
  1. KEPPRA [Suspect]
     Indication: CONVULSION
     Dosage: 250 MG 1 BID ORAL 047
     Route: 048
     Dates: start: 20090624

REACTIONS (3)
  - AMNESIA [None]
  - GAIT DISTURBANCE [None]
  - HALLUCINATION [None]
